FAERS Safety Report 8177344-3 (Version None)
Quarter: 2012Q1

REPORT INFORMATION
  Report Type: 
  Country: None (occurrence: None)
  Receive Date: 20120301
  Receipt Date: 20120215
  Transmission Date: 20120608
  Serious: Yes (Other)
  Sender: FDA-Public Use
  Company Number: US-BAYER-201026008NA

PATIENT
  Age: 30 Year
  Sex: Female
  Weight: 68 kg

DRUGS (4)
  1. YAZ [Suspect]
     Indication: CONTRACEPTION
     Dosage: UNK
     Route: 048
     Dates: start: 20061126, end: 20070612
  2. FLEXERIL [Concomitant]
     Indication: HEADACHE
     Dosage: UNK
     Dates: start: 20070101
  3. YASMIN [Suspect]
     Dosage: UNK
     Dates: start: 20050325, end: 20060910
  4. YASMIN [Suspect]
     Indication: CONTRACEPTION
     Dosage: UNK
     Route: 048
     Dates: start: 20031115, end: 20041230

REACTIONS (5)
  - NAUSEA [None]
  - BLINDNESS [None]
  - CEREBROVASCULAR ACCIDENT [None]
  - HEADACHE [None]
  - AMNESIA [None]
